FAERS Safety Report 9131673 (Version 1)
Quarter: 2013Q1

REPORT INFORMATION
  Report Type: Spontaneous
  Country: US (occurrence: US)
  Receive Date: 20130301
  Receipt Date: 20130301
  Transmission Date: 20140127
  Serious: No
  Sender: FDA-Public Use
  Company Number: US-009507513-1302USA010321

PATIENT
  Sex: Male

DRUGS (3)
  1. VICTRELIS [Suspect]
     Dosage: UNK
     Route: 048
     Dates: start: 20130201
  2. PEGINTRON [Suspect]
     Dosage: 120 MICROGRAM, QW
     Route: 058
     Dates: start: 20130101
  3. RIBASPHERE [Suspect]
     Dosage: UNK
     Dates: start: 20130101

REACTIONS (1)
  - Fatigue [Not Recovered/Not Resolved]
